FAERS Safety Report 16422095 (Version 1)
Quarter: 2019Q2

REPORT INFORMATION
  Report Type: Spontaneous
  Country: US (occurrence: US)
  Receive Date: 20190612
  Receipt Date: 20190612
  Transmission Date: 20190711
  Serious: No
  Sender: FDA-Public Use
  Company Number: US-PERRIGO-19US003744

PATIENT
  Age: 58 Year
  Sex: Male
  Weight: 75.28 kg

DRUGS (4)
  1. MINOXIDIL. [Suspect]
     Active Substance: MINOXIDIL
     Indication: ALOPECIA
     Dosage: 1/2 TO 2/3 CAPFUL, BID
     Route: 061
     Dates: start: 201811, end: 20190227
  2. INSULIN [Concomitant]
     Active Substance: INSULIN NOS
     Indication: DIABETES MELLITUS
     Dosage: UNK
     Route: 065
  3. MINOXIDIL. [Suspect]
     Active Substance: MINOXIDIL
     Dosage: 1/2 TO 2/3 CAPFUL, BID
     Route: 061
     Dates: start: 20190320
  4. PROPECIA [Suspect]
     Active Substance: FINASTERIDE
     Indication: ALOPECIA
     Dosage: 2.5 MG, QD
     Route: 048
     Dates: start: 201811, end: 20190227

REACTIONS (4)
  - Pruritus [Recovering/Resolving]
  - Eczema [Recovering/Resolving]
  - Incorrect dose administered [Not Recovered/Not Resolved]
  - Rash [Recovering/Resolving]

NARRATIVE: CASE EVENT DATE: 201811
